FAERS Safety Report 4964546-X (Version None)
Quarter: 2006Q2

REPORT INFORMATION
  Report Type: 
  Country: None (occurrence: None)
  Receive Date: 20060406
  Receipt Date: 20060323
  Transmission Date: 20061013
  Serious: Yes (Other)
  Sender: FDA-Public Use
  Company Number: GB-GLAXOSMITHKLINE-B0417234A

PATIENT
  Sex: Male

DRUGS (1)
  1. ZYBAN [Suspect]
     Route: 048
     Dates: start: 20000710

REACTIONS (12)
  - BALANCE DISORDER [None]
  - CONFUSIONAL STATE [None]
  - COORDINATION ABNORMAL [None]
  - CRYING [None]
  - DELUSIONAL DISORDER, PERSECUTORY TYPE [None]
  - DEPRESSED MOOD [None]
  - DEPRESSION [None]
  - DYSPHASIA [None]
  - FRUSTRATION [None]
  - MOVEMENT DISORDER [None]
  - SPEECH DISORDER [None]
  - SUICIDAL IDEATION [None]
